FAERS Safety Report 6232623-1 (Version None)
Quarter: 2009Q2

REPORT INFORMATION
  Report Type: 
  Country: None (occurrence: None)
  Receive Date: 20090612
  Receipt Date: 20090612
  Transmission Date: 20091009
  Serious: Yes (Other)
  Sender: FDA-Public Use
  Company Number: None

PATIENT
  Age: 95 Year
  Sex: Male
  Weight: 75.7507 kg

DRUGS (1)
  1. NASONEX [Suspect]
     Indication: NASAL CONGESTION
     Dosage: 1 SPRAY 2 DAILY UP NOSTRILS
     Route: 045
     Dates: start: 20090522, end: 20090522

REACTIONS (1)
  - NASAL DISCOMFORT [None]
